FAERS Safety Report 16404232 (Version 1)
Quarter: 2019Q3

REPORT INFORMATION
  Report Type: Spontaneous
  Country: US (occurrence: US)
  Receive Date: 20190606
  Receipt Date: 20190606
  Transmission Date: 20191004
  Serious: Yes (Disabling)
  Sender: FDA-Public Use
  Company Number: None

PATIENT
  Age: 32 Year
  Sex: Female

DRUGS (2)
  1. PAROXETINE TABLETS, USP 20 MG [Suspect]
     Active Substance: PAROXETINE
     Indication: ANXIETY
     Dosage: ?          QUANTITY:1 TABLET(S);?
     Route: 048
     Dates: start: 20190516, end: 20190531
  2. PAROXETINE TABLETS, USP 20 MG [Suspect]
     Active Substance: PAROXETINE
     Indication: DEPRESSION
     Dosage: ?          QUANTITY:1 TABLET(S);?
     Route: 048
     Dates: start: 20190516, end: 20190531

REACTIONS (5)
  - Product substitution issue [None]
  - Therapeutic product effect incomplete [None]
  - Suicidal ideation [None]
  - Alopecia [None]
  - Depression [None]

NARRATIVE: CASE EVENT DATE: 20190526
